FAERS Safety Report 8277484-4 (Version None)
Quarter: 2012Q2

REPORT INFORMATION
  Report Type: 
  Country: None (occurrence: None)
  Receive Date: 20120412
  Receipt Date: 20120408
  Transmission Date: 20120825
  Serious: Yes (Other)
  Sender: FDA-Public Use
  Company Number: PHHY2012US030085

PATIENT
  Age: 84 Year
  Sex: Female

DRUGS (3)
  1. ASPIRIN [Concomitant]
  2. LEVOTHYROXINE SODIUM [Concomitant]
  3. DOXYCYCLINE [Suspect]
     Indication: TOOTH DISORDER
     Dosage: UNK

REACTIONS (6)
  - CUTANEOUS LUPUS ERYTHEMATOSUS [None]
  - RASH PAPULAR [None]
  - SKIN PLAQUE [None]
  - EXFOLIATIVE RASH [None]
  - FATIGUE [None]
  - PALLOR [None]
